FAERS Safety Report 25477192 (Version 1)
Quarter: 2025Q2

REPORT INFORMATION
  Report Type: Spontaneous
  Country: CL (occurrence: CL)
  Receive Date: 20250625
  Receipt Date: 20250625
  Transmission Date: 20250717
  Serious: No
  Sender: ALKEM
  Company Number: CL-ALKEM LABORATORIES LIMITED-CL-ALKEM-2025-03150

PATIENT
  Age: 24 Year
  Sex: Female

DRUGS (3)
  1. CINACALCET [Suspect]
     Active Substance: CINACALCET
     Indication: Pancreatitis acute
     Route: 065
  2. CINACALCET [Suspect]
     Active Substance: CINACALCET
     Indication: Hypercalcaemia
  3. CINACALCET [Suspect]
     Active Substance: CINACALCET
     Indication: Parathyroid tumour benign

REACTIONS (2)
  - Exposure during pregnancy [Unknown]
  - Therapy partial responder [Unknown]
